FAERS Safety Report 6024882-5 (Version None)
Quarter: 2008Q4

REPORT INFORMATION
  Report Type: 
  Country: None (occurrence: None)
  Receive Date: 20081231
  Receipt Date: 20081220
  Transmission Date: 20090506
  Serious: Yes (Other)
  Sender: FDA-Public Use
  Company Number: FI-PFIZER INC-2008092977

PATIENT

DRUGS (2)
  1. LYRICA [Suspect]
     Dosage: 25 MG, 1X/DAY
     Route: 048
  2. BURANA [Concomitant]
     Dosage: UNK

REACTIONS (3)
  - MALAISE [None]
  - TUNNEL VISION [None]
  - VISION BLURRED [None]
